FAERS Safety Report 7637510-X (Version None)
Quarter: 2011Q3

REPORT INFORMATION
  Report Type: 
  Country: None (occurrence: None)
  Receive Date: 20110726
  Receipt Date: 20110719
  Transmission Date: 20111222
  Serious: Yes (Other)
  Sender: FDA-Public Use
  Company Number: PHEH2008US06111

PATIENT
  Sex: Female

DRUGS (43)
  1. ESTRADERM [Suspect]
     Indication: HORMONE REPLACEMENT THERAPY
     Dosage: 0.5  / 2 X WEEKLY
     Route: 062
     Dates: start: 19910101, end: 19960806
  2. MEVACOR [Concomitant]
     Dosage: UNK
  3. ZOCOR [Concomitant]
     Dosage: UNK
  4. PREGNENOLONE [Concomitant]
     Dosage: UNK
  5. LASIX [Concomitant]
     Dosage: 40 MG, UNK
  6. PRASTERONE [Concomitant]
     Route: 061
  7. ATIVAN [Concomitant]
     Dosage: 0.5 MG
  8. TAMBOCOR [Concomitant]
  9. REGLAN [Concomitant]
     Dosage: 10 MG / TID
     Route: 048
     Dates: start: 20001109
  10. NITROGLYCERIN [Concomitant]
     Dosage: UNK
  11. POTASSIUM [Concomitant]
  12. CRESTOR [Concomitant]
     Dosage: 20 MG, UNK
  13. NEXIUM [Concomitant]
  14. NEOMYCIN [Concomitant]
  15. KLONOPIN [Concomitant]
     Dosage: .5 X 1/2 / BID
  16. ASPIRIN [Concomitant]
     Dosage: UNK
  17. ASPIRIN [Concomitant]
     Dosage: UNK
  18. PINDOLOL [Concomitant]
     Dosage: 10 MG, UNK
  19. DAYPRO [Concomitant]
     Dosage: UNK
  20. MULTI-VITAMINS [Concomitant]
     Dosage: UNK
  21. PLAVIX [Concomitant]
     Dosage: UNK
  22. LIPITOR [Concomitant]
     Dosage: UNK
  23. PREVACID [Concomitant]
     Dosage: UNK
  24. RAMIPRIL [Concomitant]
     Dosage: 5 MG, UNK
  25. PROVERA [Suspect]
     Indication: HORMONE REPLACEMENT THERAPY
     Dosage: 10 MG, QD
     Dates: start: 19890101, end: 19960806
  26. MEDROXYPROGESTERONE ACETATE [Suspect]
     Indication: HORMONE REPLACEMENT THERAPY
     Dosage: UNK
     Dates: end: 19960806
  27. COZAAR [Concomitant]
     Dosage: 100 MG, UNK
  28. ZETIA [Concomitant]
  29. ZANTAC [Concomitant]
     Dosage: UNK
  30. TOPRAL [Concomitant]
     Dosage: UNK
  31. GLUCOSAMINE SULFATE [Concomitant]
     Dosage: 500 MG / BID
     Route: 048
  32. ECHINACEA [Concomitant]
     Dosage: UNK
  33. PREMARIN [Suspect]
     Indication: HORMONE REPLACEMENT THERAPY
     Dosage: 0.625 MG, UNK
     Dates: start: 19890101, end: 19960806
  34. ASPIRIN [Concomitant]
     Dosage: UNK
  35. PEPCID [Concomitant]
     Dosage: UNK
  36. LIPIDIL [Concomitant]
     Indication: HYPERCHOLESTEROLAEMIA
     Dosage: UNK
  37. NOLVADEX [Concomitant]
     Dosage: UNK
  38. ALTACE [Concomitant]
     Dosage: UNK
  39. CELEXA [Concomitant]
     Dosage: UNK
  40. XANAX [Concomitant]
     Dosage: UNK
  41. ZOLOFT [Concomitant]
     Dosage: UNK
  42. ATENENTOL [Concomitant]
     Dosage: UNK
  43. RANITIDINE [Concomitant]

REACTIONS (44)
  - ARTERIOSCLEROSIS [None]
  - DEPRESSION [None]
  - DRY SKIN [None]
  - HYPERCHOLESTEROLAEMIA [None]
  - IRRITABLE BOWEL SYNDROME [None]
  - ARTHRALGIA [None]
  - SJOGREN'S SYNDROME [None]
  - CERVICAL DYSPLASIA [None]
  - DECREASED IMMUNE RESPONSIVENESS [None]
  - FIBROMYALGIA [None]
  - ANXIETY DISORDER [None]
  - HOT FLUSH [None]
  - ARTERIAL OCCLUSIVE DISEASE [None]
  - SPINAL OSTEOARTHRITIS [None]
  - CLUSTER HEADACHE [None]
  - DIARRHOEA [None]
  - MENTAL DISORDER [None]
  - PANIC DISORDER [None]
  - DRY EYE [None]
  - EYE PRURITUS [None]
  - MUSCULOSKELETAL DISCOMFORT [None]
  - DYSLIPIDAEMIA [None]
  - OESOPHAGEAL SPASM [None]
  - GASTRITIS [None]
  - FLUID RETENTION [None]
  - CHEST PAIN [None]
  - ABDOMINAL PAIN [None]
  - CEREBRAL ISCHAEMIA [None]
  - BUNDLE BRANCH BLOCK LEFT [None]
  - HIATUS HERNIA [None]
  - DIHYDROTESTOSTERONE DECREASED [None]
  - EROSIVE OESOPHAGITIS [None]
  - OEDEMA PERIPHERAL [None]
  - HAEMATOCHEZIA [None]
  - GENERAL PHYSICAL HEALTH DETERIORATION [None]
  - ARRHYTHMIA [None]
  - WEIGHT INCREASED [None]
  - HAIR TEXTURE ABNORMAL [None]
  - FAECES DISCOLOURED [None]
  - SKIN DISORDER [None]
  - EYE IRRITATION [None]
  - BREAST CANCER [None]
  - CERVIX INFLAMMATION [None]
  - LDL/HDL RATIO [None]
